FAERS Safety Report 10807151 (Version 1)
Quarter: 2015Q1

REPORT INFORMATION
  Report Type: Report from Study
  Country: US (occurrence: US)
  Receive Date: 20150217
  Receipt Date: 20150217
  Transmission Date: 20150721
  Serious: No
  Sender: FDA-Public Use
  Company Number: US-ABBVIE-14K-163-1245397-00

PATIENT
  Age: 52 Year
  Sex: Female

DRUGS (15)
  1. TRIAMCINOLONE ACETONIDE. [Concomitant]
     Active Substance: TRIAMCINOLONE ACETONIDE
     Indication: SKIN DISORDER
     Dosage: TWO TO FOUR TIMES
  2. HUMIRA [Suspect]
     Active Substance: ADALIMUMAB
     Indication: PSORIASIS
     Dates: start: 20140403, end: 20140403
  3. LIDOCAINE. [Concomitant]
     Active Substance: LIDOCAINE
     Indication: PSORIASIS
     Route: 061
  4. CLOTRIMAZOLE AND BETAMETHASONE [Concomitant]
     Indication: FUNGAL SKIN INFECTION
  5. CITALOPRAM [Concomitant]
     Active Substance: CITALOPRAM HYDROBROMIDE
     Indication: PRODUCT USED FOR UNKNOWN INDICATION
  6. XANAX [Concomitant]
     Active Substance: ALPRAZOLAM
     Indication: PRODUCT USED FOR UNKNOWN INDICATION
     Dosage: QID
  7. TOPIRAMATE. [Concomitant]
     Active Substance: TOPIRAMATE
     Indication: PRODUCT USED FOR UNKNOWN INDICATION
     Dosage: AT BEDTIME
  8. IMITREX [Concomitant]
     Active Substance: SUMATRIPTAN\SUMATRIPTAN SUCCINATE
     Indication: PRODUCT USED FOR UNKNOWN INDICATION
  9. HUMIRA [Suspect]
     Active Substance: ADALIMUMAB
     Dates: start: 20140413
  10. LIDOCAINE. [Concomitant]
     Active Substance: LIDOCAINE
     Indication: PAIN
  11. PRAVASTATIN [Concomitant]
     Active Substance: PRAVASTATIN\PRAVASTATIN SODIUM
     Indication: PRODUCT USED FOR UNKNOWN INDICATION
     Dates: end: 201405
  12. UNKNOWN CREAM [Suspect]
     Active Substance: UNSPECIFIED INGREDIENT
     Indication: PRODUCT USED FOR UNKNOWN INDICATION
  13. WELLBUTRIN [Concomitant]
     Active Substance: BUPROPION HYDROCHLORIDE
     Indication: PRODUCT USED FOR UNKNOWN INDICATION
  14. OXYCODONE [Concomitant]
     Active Substance: OXYCODONE
     Indication: PAIN
     Dosage: QID
  15. STELARA [Concomitant]
     Active Substance: USTEKINUMAB
     Indication: PRODUCT USED FOR UNKNOWN INDICATION

REACTIONS (15)
  - Drug dependence [Unknown]
  - Genital pain [Unknown]
  - Inappropriate schedule of drug administration [Recovered/Resolved]
  - Alopecia [Unknown]
  - Psoriasis [Not Recovered/Not Resolved]
  - Urinary tract infection [Not Recovered/Not Resolved]
  - Drug effect incomplete [Unknown]
  - Musculoskeletal chest pain [Not Recovered/Not Resolved]
  - Discomfort [Unknown]
  - Pain [Not Recovered/Not Resolved]
  - Pruritus genital [Unknown]
  - Pustular psoriasis [Unknown]
  - Dysuria [Unknown]
  - Micturition urgency [Unknown]
  - Nocturia [Unknown]

NARRATIVE: CASE EVENT DATE: 20140410
